FAERS Safety Report 18037515 (Version 1)
Quarter: 2020Q3

REPORT INFORMATION
  Report Type: Spontaneous
  Country: JP (occurrence: JP)
  Receive Date: 20200717
  Receipt Date: 20200717
  Transmission Date: 20201103
  Serious: Yes (Other)
  Sender: FDA-Public Use
  Company Number: JP-PFIZER INC-2020272935

PATIENT

DRUGS (1)
  1. PREMARIN [Suspect]
     Active Substance: ESTROGENS, CONJUGATED
     Indication: INFERTILITY
     Dosage: UNK
     Route: 048
     Dates: start: 20200709, end: 20200713

REACTIONS (3)
  - Off label use [Unknown]
  - Intervertebral disc protrusion [Unknown]
  - Product use in unapproved indication [Unknown]
